FAERS Safety Report 6842273-1 (Version None)
Quarter: 2010Q3

REPORT INFORMATION
  Report Type: 
  Country: None (occurrence: None)
  Receive Date: 20100714
  Receipt Date: 20070723
  Transmission Date: 20110219
  Serious: No
  Sender: FDA-Public Use
  Company Number: US-PFIZER INC-2007062596

PATIENT
  Sex: Female
  Weight: 56.7 kg

DRUGS (8)
  1. CHANTIX [Suspect]
     Indication: SMOKING CESSATION THERAPY
     Dates: start: 20070711
  2. DILANTIN [Concomitant]
  3. VYTORIN [Concomitant]
  4. ATENOLOL [Concomitant]
  5. ANTIBIOTICS [Concomitant]
  6. COUGH AND COLD PREPARATIONS [Concomitant]
  7. SPIRIVA [Concomitant]
  8. EVISTA [Concomitant]

REACTIONS (6)
  - ABNORMAL DREAMS [None]
  - BRONCHITIS [None]
  - CONSTIPATION [None]
  - HEADACHE [None]
  - MYALGIA [None]
  - NAUSEA [None]
